FAERS Safety Report 25657579 (Version 1)
Quarter: 2025Q3

REPORT INFORMATION
  Report Type: Report from Study
  Country: US (occurrence: US)
  Receive Date: 20250808
  Receipt Date: 20250808
  Transmission Date: 20251020
  Serious: No
  Sender: BIOGEN
  Company Number: US-BIOGEN-2025BI01319256

PATIENT
  Sex: Female

DRUGS (2)
  1. ZURZUVAE [Suspect]
     Active Substance: ZURANOLONE
     Indication: Perinatal depression
     Dosage: TAKE 50 MG (2 CAPSULES) ONCE DAILY FOR 14 DAYS. (MAX DAILY AMOUNT: 50 MG (2 CAPSULES
     Route: 050
  2. ZURZUVAE [Suspect]
     Active Substance: ZURANOLONE
     Route: 050

REACTIONS (3)
  - Malaise [Unknown]
  - Drug intolerance [Unknown]
  - Confusional state [Unknown]
